FAERS Safety Report 19439426 (Version 1)
Quarter: 2021Q2

REPORT INFORMATION
  Report Type: Spontaneous
  Country: FR (occurrence: FR)
  Receive Date: 20210618
  Receipt Date: 20210618
  Transmission Date: 20210717
  Serious: Yes (Hospitalization, Congenital Anomaly, Other)
  Sender: FDA-Public Use
  Company Number: FR-ABBVIE-21K-056-3944459-00

PATIENT
  Sex: Male

DRUGS (1)
  1. DEPAKINE [Suspect]
     Active Substance: VALPROATE SODIUM
     Indication: MATERNAL EXPOSURE TIMING UNSPECIFIED
     Route: 064

REACTIONS (39)
  - Premature baby [Unknown]
  - Cognitive disorder [Unknown]
  - Foetal exposure during pregnancy [Unknown]
  - Eating disorder [Unknown]
  - Pharyngeal disorder [Unknown]
  - Asthma [Unknown]
  - Language disorder [Unknown]
  - Cardiac disorder [Unknown]
  - Nasal disorder [Unknown]
  - Back disorder [Unknown]
  - Gait disturbance [Unknown]
  - Dyspraxia [Unknown]
  - Behaviour disorder [Unknown]
  - Ear disorder [Unknown]
  - Cerebral palsy [Unknown]
  - Bronchial hyperreactivity [Unknown]
  - Food allergy [Unknown]
  - Disturbance in attention [Unknown]
  - Astigmatism [Unknown]
  - Hypertelorism [Unknown]
  - Limb malformation [Unknown]
  - Pain [Unknown]
  - Autism spectrum disorder [Unknown]
  - Psychomotor skills impaired [Unknown]
  - Neurodevelopmental disorder [Unknown]
  - Periventricular leukomalacia [Unknown]
  - Fatigue [Unknown]
  - Dysphagia [Unknown]
  - Bronchopulmonary dysplasia [Unknown]
  - Hypersensitivity [Unknown]
  - Allergy to animal [Unknown]
  - Respiratory disorder [Unknown]
  - Heart valve incompetence [Unknown]
  - Scoliosis [Unknown]
  - Diplegia [Unknown]
  - Fall [Unknown]
  - Aggression [Unknown]
  - Communication disorder [Unknown]
  - Speech disorder developmental [Unknown]

NARRATIVE: CASE EVENT DATE: 20040121
